FAERS Safety Report 13366707 (Version 1)
Quarter: 2017Q1

REPORT INFORMATION
  Report Type: Spontaneous
  Country: RU (occurrence: RU)
  Receive Date: 20170323
  Receipt Date: 20170323
  Transmission Date: 20170429
  Serious: Yes (Life-Threatening)
  Sender: FDA-Public Use
  Company Number: RU-ASTRAZENECA-2017SE29951

PATIENT
  Age: 57 Year
  Sex: Female
  Weight: 67 kg

DRUGS (8)
  1. ASPIRIN CARDIO [Concomitant]
     Active Substance: ASPIRIN
  2. BRILINTA [Suspect]
     Active Substance: TICAGRELOR
     Indication: MYOCARDIAL INFARCTION
     Route: 048
     Dates: start: 20160517
  3. ROSUVASTATIN. [Concomitant]
     Active Substance: ROSUVASTATIN
  4. BETALOC ZOK [Concomitant]
     Active Substance: METOPROLOL SUCCINATE
  5. METOPROLOL. [Concomitant]
     Active Substance: METOPROLOL
  6. EFFOX LONG [Concomitant]
     Active Substance: ISOSORBIDE MONONITRATE
  7. TORASEMIDE [Concomitant]
     Active Substance: TORSEMIDE
  8. RAMIPRIL. [Concomitant]
     Active Substance: RAMIPRIL

REACTIONS (1)
  - Myocardial infarction [Unknown]

NARRATIVE: CASE EVENT DATE: 20160606
